FAERS Safety Report 6185398-9 (Version None)
Quarter: 2009Q2

REPORT INFORMATION
  Report Type: 
  Country: None (occurrence: None)
  Receive Date: 20090507
  Receipt Date: 20090430
  Transmission Date: 20091009
  Serious: Yes (Hospitalization)
  Sender: FDA-Public Use
  Company Number: 2009001237

PATIENT
  Age: 80 Year
  Sex: Male

DRUGS (4)
  1. ERLOTINIB (ERLOTINIB) (TABLET) (ERLOTINIB) [Suspect]
     Dosage: (QD),ORAL
     Route: 048
     Dates: start: 20080624, end: 20081021
  2. BEVACIZUMAB) [Suspect]
     Dates: start: 20080624, end: 20081021
  3. CAPECITABINE (CAPECITABINE) [Suspect]
     Dates: start: 20080624, end: 20081021
  4. GEMCITABINE [Suspect]
     Dates: start: 20080624, end: 20081021

REACTIONS (3)
  - CELLULITIS [None]
  - IMPAIRED HEALING [None]
  - LIMB INJURY [None]
